FAERS Safety Report 17500610 (Version 1)
Quarter: 2020Q1

REPORT INFORMATION
  Report Type: Spontaneous
  Country: US (occurrence: US)
  Receive Date: 20200224
  Receipt Date: 20200224
  Transmission Date: 20200409
  Serious: No
  Sender: FDA-Public Use
  Company Number: None

PATIENT
  Age: 30 Year
  Sex: Female

DRUGS (1)
  1. DESMOPRESSIN MDV 4MCG/ML [Suspect]
     Active Substance: DESMOPRESSIN ACETATE
     Route: 058
     Dates: start: 20180516

REACTIONS (1)
  - Product supply issue [None]

NARRATIVE: CASE EVENT DATE: 20200224
